FAERS Safety Report 20663380 (Version 2)
Quarter: 2022Q3

REPORT INFORMATION
  Report Type: Spontaneous
  Country: CA (occurrence: CA)
  Receive Date: 20220401
  Receipt Date: 20220712
  Transmission Date: 20221026
  Serious: Yes (Other)
  Sender: FDA-Public Use
  Company Number: CA-GLAXOSMITHKLINE-CA2022GSK058513

PATIENT

DRUGS (1)
  1. ZANTAC [Suspect]
     Active Substance: RANITIDINE HYDROCHLORIDE
     Indication: Gastrooesophageal reflux disease
     Dosage: UNK
     Route: 065
     Dates: start: 1999, end: 2019

REACTIONS (13)
  - Lung adenocarcinoma [Unknown]
  - Metastases to pleura [Unknown]
  - Non-small cell lung cancer metastatic [Unknown]
  - Lung cancer metastatic [Unknown]
  - Metastatic bronchial carcinoma [Unknown]
  - Lung neoplasm malignant [Unknown]
  - Bronchial carcinoma [Unknown]
  - Pulmonary fibrosis [Unknown]
  - Pulmonary mass [Unknown]
  - Obstructive airways disorder [Unknown]
  - Pleural thickening [Unknown]
  - Pleural disorder [Unknown]
  - Dyspnoea [Unknown]
